FAERS Safety Report 5421870-4 (Version None)
Quarter: 2007Q3

REPORT INFORMATION
  Report Type: 
  Country: None (occurrence: None)
  Receive Date: 20070817
  Receipt Date: 20070726
  Transmission Date: 20080115
  Serious: Yes (Hospitalization)
  Sender: FDA-Public Use
  Company Number: 2007RR-09018

PATIENT
  Sex: Female

DRUGS (4)
  1. DOXYCYCLINE [Suspect]
  2. STREPTOMYCIN [Concomitant]
  3. METHYLPREDNISOLONE [Concomitant]
  4. URSODEOXYCHOLIACID (URSODEOXYCHOLIACID) [Concomitant]

REACTIONS (2)
  - AUTOIMMUNE HEPATITIS [None]
  - BILIARY CIRRHOSIS [None]
